FAERS Safety Report 11338118 (Version 1)
Quarter: 2015Q3

REPORT INFORMATION
  Report Type: Spontaneous
  Country: US (occurrence: US)
  Receive Date: 20150803
  Receipt Date: 20150803
  Transmission Date: 20151125
  Serious: No
  Sender: FDA-Public Use
  Company Number: US-ELI_LILLY_AND_COMPANY-US201006007592

PATIENT
  Age: 25 Year
  Sex: Male

DRUGS (3)
  1. ANTIDEPRESSANTS [Concomitant]
     Active Substance: UNSPECIFIED INGREDIENT
  2. COGENTIN [Concomitant]
     Active Substance: BENZTROPINE MESYLATE
  3. ZYPREXA [Suspect]
     Active Substance: OLANZAPINE
     Indication: DEPRESSION
     Dosage: 15 MG, UNK

REACTIONS (2)
  - Movement disorder [Unknown]
  - Akathisia [Recovering/Resolving]
